FAERS Safety Report 7014722-X (Version None)
Quarter: 2010Q3

REPORT INFORMATION
  Report Type: 
  Country: None (occurrence: None)
  Receive Date: 20100927
  Receipt Date: 20100915
  Transmission Date: 20110219
  Serious: Yes (Other)
  Sender: FDA-Public Use
  Company Number: PHHY2010BR61716

PATIENT
  Age: 56 Year
  Sex: Male

DRUGS (4)
  1. EXFORGE [Suspect]
     Indication: HYPERTENSION
     Dosage: 1 TABLET (320/5 MG) DAILY
     Dates: start: 20100601
  2. METOPROLOL SUCCINATE [Concomitant]
  3. NORVASC [Concomitant]
  4. PLAVIX [Concomitant]

REACTIONS (3)
  - ARTERIAL OCCLUSIVE DISEASE [None]
  - CARDIAC OPERATION [None]
  - STENT PLACEMENT [None]
